FAERS Safety Report 22310567 (Version 2)
Quarter: 2023Q2

REPORT INFORMATION
  Report Type: Report from Study
  Country: US (occurrence: US)
  Receive Date: 20230511
  Receipt Date: 20230515
  Transmission Date: 20230722
  Serious: No
  Sender: FDA-Public Use
  Company Number: US-SANOFI-01607475

PATIENT
  Age: 82 Year
  Sex: Male

DRUGS (2)
  1. DUPIXENT [Suspect]
     Active Substance: DUPILUMAB
     Indication: Dermatitis atopic
     Dosage: 600 MG, 1X
     Route: 058
     Dates: start: 202304, end: 202304
  2. DUPIXENT [Suspect]
     Active Substance: DUPILUMAB
     Dosage: 300 MG QOW AND DRUG TREATMENT DURATION:1 MONTH
     Route: 058
     Dates: start: 2023

REACTIONS (9)
  - Decreased appetite [Unknown]
  - Abdominal pain lower [Unknown]
  - Condition aggravated [Unknown]
  - Constipation [Unknown]
  - Weight decreased [Unknown]
  - Dyspnoea [Unknown]
  - Renal pain [Unknown]
  - Insomnia [Unknown]
  - Inappropriate schedule of product administration [Unknown]
